FAERS Safety Report 6268725-3 (Version None)
Quarter: 2009Q3

REPORT INFORMATION
  Report Type: 
  Country: None (occurrence: None)
  Receive Date: 20090714
  Receipt Date: 20090714
  Transmission Date: 20100115
  Serious: Yes (Death)
  Sender: FDA-Public Use
  Company Number: None

PATIENT
  Age: 69 Year
  Sex: Female
  Weight: 90.7194 kg

DRUGS (1)
  1. TORADOL [Suspect]
     Indication: PROCEDURAL PAIN
     Dosage: IV
     Route: 042
     Dates: start: 20081105, end: 20081107

REACTIONS (3)
  - HYPERKALAEMIA [None]
  - INTESTINAL OBSTRUCTION [None]
  - RENAL FAILURE [None]
